FAERS Safety Report 12758528 (Version 1)
Quarter: 2016Q3

REPORT INFORMATION
  Report Type: Spontaneous
  Country: BR (occurrence: BR)
  Receive Date: 20160919
  Receipt Date: 20160919
  Transmission Date: 20161109
  Serious: Yes (Other)
  Sender: FDA-Public Use
  Company Number: BR-PFIZER INC-2016431098

PATIENT
  Age: 88 Year
  Sex: Female

DRUGS (3)
  1. XALATAN [Suspect]
     Active Substance: LATANOPROST
     Dosage: 1 DROP EACH EYE PER DAY
     Route: 047
     Dates: start: 1991
  2. AZORGA [Concomitant]
     Active Substance: BRINZOLAMIDE\TIMOLOL MALEATE
     Indication: INTRAOCULAR PRESSURE TEST
     Dosage: 1 DROP RIGHT EYE, 2X/DAY
     Route: 047
     Dates: start: 2014
  3. AZOPT [Concomitant]
     Active Substance: BRINZOLAMIDE
     Indication: INTRAOCULAR PRESSURE TEST
     Dosage: 1DROP EACH EYE 3X/DAY
     Route: 047

REACTIONS (6)
  - Gait disturbance [Unknown]
  - Glaucoma [Unknown]
  - Hypertension [Unknown]
  - Cataract [Unknown]
  - Blindness [Unknown]
  - Renal disorder [Unknown]

NARRATIVE: CASE EVENT DATE: 2014
